FAERS Safety Report 8780683 (Version 1)
Quarter: 2012Q4

REPORT INFORMATION
  Report Type: 
  Country: US (occurrence: US)
  Receive Date: 20120913
  Receipt Date: 20120913
  Transmission Date: 20130627
  Serious: Yes (Other)
  Sender: FDA-Public Use
  Company Number: US-ROCHE-CID000000002104006

PATIENT
  Sex: Male

DRUGS (6)
  1. AVASTIN [Suspect]
     Indication: MALIGNANT RESPIRATORY TRACT NEOPLASM
     Route: 065
  2. TARCEVA [Suspect]
     Indication: MALIGNANT RESPIRATORY TRACT NEOPLASM
     Route: 065
  3. TAXOTERE [Concomitant]
     Route: 065
     Dates: start: 20050630
  4. CARBOPLATIN [Concomitant]
     Route: 065
     Dates: start: 20050630
  5. ALIMTA [Concomitant]
  6. GEMZAR [Concomitant]

REACTIONS (3)
  - Lung consolidation [Unknown]
  - Disease progression [Unknown]
  - Pneumonia [Recovering/Resolving]
